FAERS Safety Report 8503457-X (Version None)
Quarter: 2012Q3

REPORT INFORMATION
  Report Type: 
  Country: None (occurrence: None)
  Receive Date: 20120711
  Receipt Date: 20120619
  Transmission Date: 20120928
  Serious: Yes (Other)
  Sender: FDA-Public Use
  Company Number: US-GLAXOSMITHKLINE-A0981702A

PATIENT
  Sex: Female
  Weight: 65.9 kg

DRUGS (7)
  1. AVANDIA [Suspect]
     Indication: TYPE 2 DIABETES MELLITUS
     Dosage: 4MG UNKNOWN
     Route: 048
  2. LANTUS [Suspect]
     Indication: PRODUCT USED FOR UNKNOWN INDICATION
     Route: 065
  3. ACUPUNCTURE [Concomitant]
     Indication: ARTHRITIS
  4. METFORMIN HCL [Suspect]
     Indication: DIABETES MELLITUS
     Route: 065
  5. FLUOROMETHOLONE [Concomitant]
     Indication: PRODUCT USED FOR UNKNOWN INDICATION
  6. AMARYL [Suspect]
     Indication: DIABETES MELLITUS
     Dosage: 4MG PER DAY
     Dates: start: 20020101
  7. UNSPECIFIED MEDICATION [Concomitant]
     Indication: NAIL OPERATION

REACTIONS (16)
  - MOBILITY DECREASED [None]
  - VOMITING [None]
  - DIZZINESS [None]
  - BLOOD GLUCOSE INCREASED [None]
  - WEIGHT INCREASED [None]
  - FLUID RETENTION [None]
  - APHASIA [None]
  - AMNESIA [None]
  - ABDOMINAL DISCOMFORT [None]
  - ARTHRALGIA [None]
  - FALL [None]
  - WEIGHT DECREASED [None]
  - CHEST PAIN [None]
  - NAUSEA [None]
  - BLOOD GLUCOSE DECREASED [None]
  - AGGRESSION [None]
